FAERS Safety Report 7952537-6 (Version None)
Quarter: 2011Q4

REPORT INFORMATION
  Report Type: 
  Country: None (occurrence: None)
  Receive Date: 20111201
  Receipt Date: 20111123
  Transmission Date: 20120403
  Serious: Yes (Other)
  Sender: FDA-Public Use
  Company Number: PHHY2011CA103943

PATIENT
  Age: 7 Year
  Sex: Male

DRUGS (1)
  1. TACROLIMUS [Suspect]
     Indication: NEPHROPATHY
     Dosage: 0.18 MG/KG/DAY

REACTIONS (2)
  - RENAL TUBULAR ATROPHY [None]
  - KIDNEY FIBROSIS [None]
